FAERS Safety Report 6385441-8 (Version None)
Quarter: 2009Q4

REPORT INFORMATION
  Report Type: 
  Country: None (occurrence: None)
  Receive Date: 20091002
  Receipt Date: 20090105
  Transmission Date: 20100525
  Serious: No
  Sender: FDA-Public Use
  Company Number: US-ASTRAZENECA-2008UW18239

PATIENT
  Age: 57 Year
  Sex: Female
  Weight: 74.8 kg

DRUGS (1)
  1. ARIMIDEX [Suspect]
     Indication: INFLAMMATORY CARCINOMA OF THE BREAST
     Route: 048

REACTIONS (7)
  - ARTHRITIS [None]
  - ASTHENIA [None]
  - BONE DENSITY DECREASED [None]
  - BONE PAIN [None]
  - DEPRESSION [None]
  - NAUSEA [None]
  - WEIGHT INCREASED [None]
